FAERS Safety Report 4384414-4 (Version None)
Quarter: 2004Q2

REPORT INFORMATION
  Report Type: 
  Country: None (occurrence: None)
  Receive Date: 20040624
  Receipt Date: 20040513
  Transmission Date: 20050107
  Serious: Yes (Other)
  Sender: FDA-Public Use
  Company Number: GB-GLAXOSMITHKLINE-B0332816A

PATIENT
  Age: 64 Year
  Sex: Male
  Weight: 97 kg

DRUGS (5)
  1. AVANDAMET [Suspect]
     Indication: DIABETES MELLITUS
     Route: 048
     Dates: start: 20040315, end: 20040426
  2. ACTOS [Concomitant]
     Indication: DIABETES MELLITUS
     Route: 048
     Dates: start: 20010301, end: 20040315
  3. BENDROFLUAZIDE [Concomitant]
     Indication: HYPERTENSION
     Dosage: 2.5MG PER DAY
     Route: 048
     Dates: start: 20020531, end: 20030523
  4. METFORMIN HCL [Concomitant]
     Indication: DIABETES MELLITUS
     Dosage: 1.5G PER DAY
     Route: 048
     Dates: start: 20030523, end: 20040315
  5. ZESTORETIC [Concomitant]
     Indication: HYPERTENSION
     Route: 048
     Dates: start: 20030528

REACTIONS (4)
  - HAEMATOLOGY TEST ABNORMAL [None]
  - PANCYTOPENIA [None]
  - PLATELET COUNT DECREASED [None]
  - WHITE BLOOD CELL COUNT DECREASED [None]
